FAERS Safety Report 7430071-X (Version None)
Quarter: 2011Q2

REPORT INFORMATION
  Report Type: 
  Country: None (occurrence: None)
  Receive Date: 20110421
  Receipt Date: 20100429
  Transmission Date: 20111010
  Serious: No
  Sender: FDA-Public Use
  Company Number: US-ASTRAZENECA-2010SE19375

PATIENT
  Age: 68 Year
  Sex: Female

DRUGS (4)
  1. METOPROLOL SUCCINATE [Suspect]
     Indication: HYPERTENSION
     Route: 048
     Dates: start: 20100317, end: 20100415
  2. METOPROLOL SUCCINATE [Suspect]
     Route: 048
     Dates: start: 20100429
  3. METOPROLOL SUCCINATE [Suspect]
     Route: 048
     Dates: start: 20100416, end: 20100422
  4. METOPROLOL SUCCINATE [Suspect]
     Route: 048
     Dates: start: 20100423, end: 20100429

REACTIONS (10)
  - OROPHARYNGEAL PAIN [None]
  - PARAESTHESIA [None]
  - DIZZINESS [None]
  - SYNCOPE [None]
  - HEADACHE [None]
  - VISION BLURRED [None]
  - MYALGIA [None]
  - DRY MOUTH [None]
  - NIGHTMARE [None]
  - PERIPHERAL COLDNESS [None]
